FAERS Safety Report 10136250 (Version 2)
Quarter: 2014Q2

REPORT INFORMATION
  Report Type: Spontaneous
  Country: JP (occurrence: JP)
  Receive Date: 20140429
  Receipt Date: 20140429
  Transmission Date: 20141212
  Serious: Yes (Hospitalization, Other)
  Sender: FDA-Public Use
  Company Number: JP-AMGEN-JPNSP2014020085

PATIENT
  Age: 78 Year
  Sex: Male

DRUGS (5)
  1. ENBREL [Suspect]
     Indication: RHEUMATOID ARTHRITIS
     Dosage: 50 MG, WEEKLY
     Route: 058
     Dates: start: 201009
  2. PROGRAF [Suspect]
     Indication: RHEUMATOID ARTHRITIS
     Dosage: 2 MG, DAILY
     Route: 048
     Dates: start: 201309, end: 20130917
  3. FOSAMAC [Concomitant]
     Dosage: 35 MG, DAILY
     Route: 048
  4. CELECOX [Concomitant]
     Dosage: 400 MG, DAILY
     Route: 048
  5. TAKEPRON [Concomitant]
     Dosage: 5 MG, DAILY
     Route: 048

REACTIONS (2)
  - Ear pain [Unknown]
  - Interstitial lung disease [Recovered/Resolved]
